FAERS Safety Report 13051329 (Version 2)
Quarter: 2016Q4

REPORT INFORMATION
  Report Type: Spontaneous
  Country: DE (occurrence: DE)
  Receive Date: 20161221
  Receipt Date: 20161229
  Transmission Date: 20170207
  Serious: Yes (Other)
  Sender: FDA-Public Use
  Company Number: DE-MYLANLABS-2016M1056630

PATIENT

DRUGS (2)
  1. RYTMONORM SR 225 MG HARTKAPSELN, RETARDIERT [Suspect]
     Active Substance: PROPAFENONE
     Indication: PRODUCT USED FOR UNKNOWN INDICATION
     Dosage: CAPSULE OPENED, 17 PELLETS REMOVED FORM CONTENT, CAPSULE CLOSED AGAIN AND THEN TOOK CAPSULE
  2. RYTMONORM SR 225 MG HARTKAPSELN, RETARDIERT [Suspect]
     Active Substance: PROPAFENONE
     Dosage: 1 CAPSULE+5-6 PELLETS FROM ANOTHER CAPSULE
     Route: 065

REACTIONS (5)
  - Product quality issue [Unknown]
  - Arrhythmia [Not Recovered/Not Resolved]
  - Drug effect decreased [Unknown]
  - Off label use [Unknown]
  - Feeling abnormal [Not Recovered/Not Resolved]

NARRATIVE: CASE EVENT DATE: 20161213
